FAERS Safety Report 24027750 (Version 1)
Quarter: 2024Q2

REPORT INFORMATION
  Report Type: Spontaneous
  Country: US (occurrence: US)
  Receive Date: 20240628
  Receipt Date: 20240628
  Transmission Date: 20240716
  Serious: Yes (Hospitalization, Other)
  Sender: FDA-Public Use
  Company Number: US-MLMSERVICE-20240612-PI095313-00145-1

PATIENT
  Age: 52 Year
  Sex: Male
  Weight: 112 kg

DRUGS (3)
  1. ROCURONIUM BROMIDE [Suspect]
     Active Substance: ROCURONIUM BROMIDE
     Indication: Anaesthesia
     Dosage: 6 MICROGRAM
     Route: 065
  2. FENTANYL [Suspect]
     Active Substance: FENTANYL\FENTANYL CITRATE
     Indication: Induction of anaesthesia
     Dosage: 100 MICROGRAM
     Route: 065
  3. PROPOFOL [Suspect]
     Active Substance: PROPOFOL
     Indication: Induction of anaesthesia
     Dosage: 150 MICROGRAM
     Route: 065

REACTIONS (4)
  - Hypoxia [Recovering/Resolving]
  - Atelectasis [Recovering/Resolving]
  - Hypotension [Recovering/Resolving]
  - Airway peak pressure increased [Recovering/Resolving]
